FAERS Safety Report 5107892-1 (Version None)
Quarter: 2006Q3

REPORT INFORMATION
  Report Type: 
  Country: None (occurrence: None)
  Receive Date: 20060919
  Receipt Date: 20060908
  Transmission Date: 20061208
  Serious: Yes (Hospitalization, Other)
  Sender: FDA-Public Use
  Company Number: US-JNJFOC-20060902512

PATIENT
  Sex: Male
  Weight: 59.88 kg

DRUGS (3)
  1. REMICADE [Suspect]
     Indication: CROHN'S DISEASE
     Route: 042
  2. ONTACORT [Concomitant]
     Indication: CROHN'S DISEASE
  3. KEFLEX [Concomitant]
     Indication: ANTIBIOTIC PROPHYLAXIS

REACTIONS (2)
  - ARTHROPOD BITE [None]
  - FURUNCLE [None]
